FAERS Safety Report 4973580-5 (Version None)
Quarter: 2006Q2

REPORT INFORMATION
  Report Type: 
  Country: None (occurrence: None)
  Receive Date: 20060413
  Receipt Date: 20060413
  Transmission Date: 20061013
  Serious: Yes (Death)
  Sender: FDA-Public Use
  Company Number: None

PATIENT
  Sex: Male
  Weight: 90.7194 kg

DRUGS (5)
  1. FLECAINIDE ACETATE [Suspect]
     Indication: ATRIAL FIBRILLATION
     Dosage: 50MG  BID   PO
     Route: 048
     Dates: start: 20050114, end: 20050306
  2. FLECAINIDE ACETATE [Suspect]
     Indication: ATRIAL FLUTTER
     Dosage: 50MG  BID   PO
     Route: 048
     Dates: start: 20050114, end: 20050306
  3. FLECAINIDE ACETATE [Suspect]
     Dosage: 100MG   BID   PO
     Route: 048
     Dates: start: 20050307, end: 20050312
  4. COUMADIN [Concomitant]
  5. CARDIZEM LA [Concomitant]

REACTIONS (2)
  - MALAISE [None]
  - SUDDEN CARDIAC DEATH [None]
